FAERS Safety Report 8491077 (Version 3)
Quarter: 2013Q1

REPORT INFORMATION
  Report Type: Report from Study
  Country: CA (occurrence: CA)
  Receive Date: 20120403
  Receipt Date: 20130308
  Transmission Date: 20140127
  Serious: Yes (Other)
  Sender: FDA-Public Use
  Company Number: CA-ABBOTT-12P-028-0899193-00

PATIENT
  Age: 66 Year
  Sex: Female
  Weight: 54 kg

DRUGS (1)
  1. HUMIRA 40 MG/0.8 ML PEN [Suspect]
     Indication: ARTHRITIS
     Route: 058
     Dates: start: 20111021

REACTIONS (7)
  - Adrenal insufficiency [Unknown]
  - Lumbar vertebral fracture [Not Recovered/Not Resolved]
  - Fractured sacrum [Not Recovered/Not Resolved]
  - Fall [Unknown]
  - Osteoporosis [Unknown]
  - Back pain [Unknown]
  - Burning sensation [Unknown]
